FAERS Safety Report 7006877-8 (Version None)
Quarter: 2010Q3

REPORT INFORMATION
  Report Type: 
  Country: None (occurrence: None)
  Receive Date: 20100922
  Receipt Date: 20100921
  Transmission Date: 20110219
  Serious: Yes (Hospitalization)
  Sender: FDA-Public Use
  Company Number: TH-SP-2010-04945

PATIENT
  Age: 50 Year
  Sex: Male

DRUGS (1)
  1. IMMUCYST [Suspect]
     Indication: PRODUCT USED FOR UNKNOWN INDICATION
     Route: 065
     Dates: end: 20100909

REACTIONS (6)
  - ARTHRALGIA [None]
  - ARTHRITIS [None]
  - CONJUNCTIVITIS [None]
  - PYREXIA [None]
  - SEPSIS [None]
  - URETHRITIS [None]
